FAERS Safety Report 14334330 (Version 2)
Quarter: 2018Q1

REPORT INFORMATION
  Report Type: Spontaneous
  Country: CH (occurrence: CH)
  Receive Date: 20171228
  Receipt Date: 20180109
  Transmission Date: 20180509
  Serious: Yes (Hospitalization)
  Sender: FDA-Public Use
  Company Number: CH-PFIZER INC-2017547862

PATIENT
  Age: 65 Year
  Sex: Male

DRUGS (14)
  1. VENLAFAXIN PFIZER [Suspect]
     Active Substance: VENLAFAXINE HYDROCHLORIDE
     Dosage: 150 MG, UNK
  2. PANTOZOL [Concomitant]
     Active Substance: PANTOPRAZOLE SODIUM
     Dosage: 40 MG, 1X/DAY
     Dates: start: 201711
  3. BELOC ZOK [Concomitant]
     Active Substance: METOPROLOL SUCCINATE
     Dosage: 100 MG, 1X/DAY
  4. INTELENCE [Interacting]
     Active Substance: ETRAVIRINE
     Dosage: 200 MG, 1X/DAY
  5. ATACAND [Concomitant]
     Active Substance: CANDESARTAN CILEXETIL
     Dosage: 8 MG, 1X/DAY
  6. EMTRIVA [Concomitant]
     Active Substance: EMTRICITABINE
     Dosage: 200 MG, 1X/DAY
  7. PONSTAN [Interacting]
     Active Substance: MEFENAMIC ACID
     Indication: ARTHRALGIA
     Dosage: 500 MG, 3X/DAY
     Dates: start: 201711, end: 20171209
  8. BRUFEN [Interacting]
     Active Substance: IBUPROFEN
     Indication: ARTHRALGIA
     Dosage: 400 MG, 3X/DAY
     Dates: start: 201711, end: 20171207
  9. SPASMO URGENIN [Concomitant]
     Dosage: 1 DF, 1X/DAY
     Dates: start: 201711
  10. HYDROCODON STREULI [Concomitant]
     Dosage: 10 MG, 1X/DAY
     Dates: end: 20171213
  11. ISENTRESS [Concomitant]
     Active Substance: RALTEGRAVIR POTASSIUM
     Dosage: 400 MG, 2X/DAY
  12. SURMONTIL [Concomitant]
     Active Substance: TRIMIPRAMINE MALEATE
     Dosage: 50 MG, 1X/DAY
  13. ZYPREXA [Concomitant]
     Active Substance: OLANZAPINE
     Dosage: 20 MG, 1X/DAY
  14. TRUXAL /00012102/ [Concomitant]
     Active Substance: CHLORPROTHIXENE
     Dosage: 30 MG, 1X/DAY

REACTIONS (3)
  - Shock haemorrhagic [Recovered/Resolved]
  - Drug interaction [Recovered/Resolved]
  - Lower gastrointestinal haemorrhage [Recovered/Resolved]

NARRATIVE: CASE EVENT DATE: 201711
